FAERS Safety Report 5957465-3 (Version None)
Quarter: 2008Q4

REPORT INFORMATION
  Report Type: 
  Country: None (occurrence: None)
  Receive Date: 20081114
  Receipt Date: 20081103
  Transmission Date: 20090506
  Serious: Yes (Other)
  Sender: FDA-Public Use
  Company Number: 232033J08USA

PATIENT
  Age: 58 Year
  Sex: Female

DRUGS (4)
  1. REBIF [Suspect]
     Indication: MULTIPLE SCLEROSIS
     Dosage: 44 MCG, 3 IN 1 WEEKS, SUBCUTANEOUS
     Route: 058
     Dates: start: 20070913
  2. IBUPROFEN [Concomitant]
  3. VESICARE [Concomitant]
  4. SANCTURA (TROSPIUM) [Concomitant]

REACTIONS (2)
  - COLONIC POLYP [None]
  - PRECANCEROUS CELLS PRESENT [None]
